FAERS Safety Report 18932861 (Version 2)
Quarter: 2021Q2

REPORT INFORMATION
  Report Type: Report from Study
  Country: US (occurrence: US)
  Receive Date: 20210224
  Receipt Date: 20210527
  Transmission Date: 20210717
  Serious: No
  Sender: FDA-Public Use
  Company Number: NVSC2021US038802

PATIENT
  Age: 60 Year
  Sex: Female

DRUGS (2)
  1. ENTRESTO [Suspect]
     Active Substance: SACUBITRIL\VALSARTAN
     Indication: CARDIAC FAILURE CONGESTIVE
     Dosage: UNK UNK, BID (49/51 MG)
     Route: 065
  2. ENTRESTO [Suspect]
     Active Substance: SACUBITRIL\VALSARTAN
     Indication: CARDIAC FAILURE
     Dosage: 50(24/26) MG, BID
     Route: 048
     Dates: start: 20210130

REACTIONS (4)
  - Weight increased [Unknown]
  - Fatigue [Recovering/Resolving]
  - Thirst [Unknown]
  - Angiogram [Recovering/Resolving]

NARRATIVE: CASE EVENT DATE: 202102
